FAERS Safety Report 24186597 (Version 1)
Quarter: 2024Q3

REPORT INFORMATION
  Report Type: Spontaneous
  Country: CN (occurrence: CN)
  Receive Date: 20240808
  Receipt Date: 20240808
  Transmission Date: 20241017
  Serious: Yes (Other)
  Sender: ROCHE
  Company Number: CN-BoehringerIngelheim-2024-BI-043653

PATIENT
  Age: 55 Year
  Sex: Male
  Weight: 75 kg

DRUGS (1)
  1. ALTEPLASE [Suspect]
     Active Substance: ALTEPLASE
     Indication: Thrombolysis
     Route: 042
     Dates: start: 20240714, end: 20240714

REACTIONS (3)
  - Laryngeal oedema [Recovering/Resolving]
  - Seizure [Recovered/Resolved]
  - Dysphoria [Recovering/Resolving]

NARRATIVE: CASE EVENT DATE: 20240714
